FAERS Safety Report 9871250 (Version 4)
Quarter: 2014Q3

REPORT INFORMATION
  Report Type: Spontaneous
  Country: US (occurrence: US)
  Receive Date: 20140205
  Receipt Date: 20140801
  Transmission Date: 20150326
  Serious: Yes (Hospitalization)
  Sender: FDA-Public Use
  Company Number: US-GLAXOSMITHKLINE-A1059523A

PATIENT
  Age: 54 Year
  Sex: Female
  Weight: 112.3 kg

DRUGS (2)
  1. ADVAIR HFA [Suspect]
     Active Substance: FLUTICASONE PROPIONATE\SALMETEROL XINAFOATE
     Indication: ASTHMA
     Route: 055
     Dates: start: 20130422
  2. VENTOLIN [Suspect]
     Active Substance: ALBUTEROL SULFATE
     Indication: ASTHMA
     Dosage: 90MCG UNKNOWN
     Route: 055
     Dates: start: 20130502

REACTIONS (3)
  - Gastrointestinal disorder [Unknown]
  - Pancreatitis [Not Recovered/Not Resolved]
  - Biliary dyskinesia [Unknown]
